FAERS Safety Report 19413701 (Version 1)
Quarter: 2021Q2

REPORT INFORMATION
  Report Type: Spontaneous
  Country: IT (occurrence: IT)
  Receive Date: 20210614
  Receipt Date: 20210614
  Transmission Date: 20210717
  Serious: Yes (Hospitalization)
  Sender: FDA-Public Use
  Company Number: IT-BAYER-2021-155614

PATIENT
  Age: 36 Year
  Sex: Female
  Weight: 41 kg

DRUGS (1)
  1. CIPROXIN 500/5 MG/ML [Suspect]
     Active Substance: CIPROFLOXACIN
     Indication: TRACHEITIS
     Route: 048
     Dates: start: 20080514, end: 20080518

REACTIONS (1)
  - Neuropsychiatric symptoms [Not Recovered/Not Resolved]

NARRATIVE: CASE EVENT DATE: 20210514
